FAERS Safety Report 9627365 (Version 2)
Quarter: 2013Q4

REPORT INFORMATION
  Report Type: Not Available
  Country: US (occurrence: US)
  Receive Date: 20131016
  Receipt Date: 20131016
  Transmission Date: 20140711
  Serious: Yes (Other)
  Sender: FDA-Public Use
  Company Number: US-LUNDBECK-DKLU1086451

PATIENT
  Age: 1 Year
  Sex: Male

DRUGS (2)
  1. SABRIL (FOR ORAL SOLUTION) [Suspect]
     Indication: INFANTILE SPASMS
     Route: 048
     Dates: start: 20120801, end: 20121214
  2. SABRIL (FOR ORAL SOLUTION) [Suspect]
     Indication: EPILEPSY
     Dates: start: 20121114, end: 20121214

REACTIONS (3)
  - Convulsion [Not Recovered/Not Resolved]
  - Therapeutic response decreased [Unknown]
  - Drug ineffective [Unknown]
